FAERS Safety Report 6920706-X (Version None)
Quarter: 2010Q3

REPORT INFORMATION
  Report Type: 
  Country: None (occurrence: None)
  Receive Date: 20100812
  Receipt Date: 20100727
  Transmission Date: 20110219
  Serious: Yes (Other)
  Sender: FDA-Public Use
  Company Number: US-BAYER-201016332NA

PATIENT
  Age: 25 Year
  Sex: Female
  Weight: 54 kg

DRUGS (11)
  1. YAZ [Suspect]
     Indication: PRODUCT USED FOR UNKNOWN INDICATION
     Route: 048
     Dates: start: 20040101
  2. YASMIN [Suspect]
     Indication: PRODUCT USED FOR UNKNOWN INDICATION
     Route: 048
     Dates: start: 20040115, end: 20081105
  3. DROSPIRENONE AND EHTINYL ESTRADIOL [Suspect]
     Indication: PRODUCT USED FOR UNKNOWN INDICATION
     Route: 048
     Dates: start: 20040101
  4. SINGULAIR [Concomitant]
     Indication: HYPERSENSITIVITY
  5. ALLEGRA [Concomitant]
     Indication: HYPERSENSITIVITY
  6. ADVIL LIQUI-GELS [Concomitant]
  7. CEFAZOLIN [Concomitant]
     Route: 042
     Dates: start: 20081003, end: 20081003
  8. PERCOCET [Concomitant]
     Dates: start: 20081004
  9. LORTAB [Concomitant]
     Dates: start: 20081004
  10. COMPAZINE [Concomitant]
     Dates: start: 20081004
  11. AMBIEN [Concomitant]
     Dates: start: 20081004

REACTIONS (1)
  - CHOLECYSTITIS CHRONIC [None]
